FAERS Safety Report 13878830 (Version 1)
Quarter: 2017Q3

REPORT INFORMATION
  Report Type: Spontaneous
  Country: FR (occurrence: FR)
  Receive Date: 20170817
  Receipt Date: 20170817
  Transmission Date: 20171127
  Serious: Yes (Other)
  Sender: FDA-Public Use
  Company Number: FR-BAYER-2017-157774

PATIENT
  Age: 33 Year
  Sex: Female

DRUGS (1)
  1. MIRENA [Suspect]
     Active Substance: LEVONORGESTREL
     Indication: CHEMICAL CONTRACEPTION
     Dosage: 20 ?G, CONT
     Route: 015
     Dates: start: 2001, end: 20170626

REACTIONS (9)
  - Loss of libido [Recovered/Resolved]
  - Anxiety [Recovering/Resolving]
  - Abdominal distension [Unknown]
  - Fatigue [Unknown]
  - Breast pain [Recovering/Resolving]
  - Weight increased [Not Recovered/Not Resolved]
  - Insomnia [Unknown]
  - Negative thoughts [Recovering/Resolving]
  - Headache [Recovered/Resolved]

NARRATIVE: CASE EVENT DATE: 2001
